FAERS Safety Report 6357915-7 (Version None)
Quarter: 2009Q3

REPORT INFORMATION
  Report Type: 
  Country: None (occurrence: None)
  Receive Date: 20090911
  Receipt Date: 20090903
  Transmission Date: 20100115
  Serious: Yes (Other)
  Sender: FDA-Public Use
  Company Number: GXKR2009GB09874

PATIENT
  Age: 39 Year
  Sex: Female

DRUGS (5)
  1. LORATADINE [Suspect]
  2. BECLOMETHASONE DIPROPIONATE [Suspect]
  3. TWINRIX (HEPATITIS A VACCINE, HEPATITIS B VACCINE) INJECTION [Suspect]
     Indication: PROPHYLAXIS
     Dosage: 1 DF, QD (FIRST DOSE), INJECTION NOS, 1 DF, ONCE/SINGLE, INJECTION NOS
     Dates: start: 20090519, end: 20090519
  4. TYPHERIX (TYPHOID VACCINE) INJECTION [Suspect]
     Indication: PROPHYLAXIS
     Dosage: 1 DF, ONCE/SINGLE, INJECTION NOS
     Dates: start: 20090512, end: 20090512
  5. YELLOW FEVER VACCINE (YELLOW FEVER VACCINE) INJECTION [Suspect]
     Indication: PROPHYLAXIS
     Dosage: 1 DF, QD, INJECTION NOS
     Dates: start: 20090501, end: 20090501

REACTIONS (2)
  - ABORTION INDUCED [None]
  - DRUG EXPOSURE DURING PREGNANCY [None]
